FAERS Safety Report 9909805 (Version 2)
Quarter: 2014Q2

REPORT INFORMATION
  Report Type: Spontaneous
  Country: CZ (occurrence: CZ)
  Receive Date: 20140219
  Receipt Date: 20140428
  Transmission Date: 20141212
  Serious: Yes (Life-Threatening, Hospitalization, Disabling)
  Sender: FDA-Public Use
  Company Number: CZ-B.I. PHARMACEUTICALS,INC./RIDGEFIELD-2014-BI-07142CZ

PATIENT
  Age: 75 Year
  Sex: Female

DRUGS (9)
  1. PRADAXA [Suspect]
     Indication: ATRIAL FIBRILLATION
     Dosage: 300 MG
     Route: 048
  2. CORDARONE (AMIODARONE) [Concomitant]
     Route: 048
  3. VASOCARDIN (BETA-BLOCKER) [Concomitant]
     Route: 048
  4. RHEFLUIN (AMILORID/ HYDROCHLOROTHIAZID) [Concomitant]
     Indication: TYPE 2 DIABETES MELLITUS
     Route: 048
  5. LEXAURIN (BROMAZEPAM) [Concomitant]
     Route: 048
  6. RHANITIDINE [Concomitant]
     Indication: GASTRODUODENAL ULCER
     Route: 048
  7. ARIDIMEX (ANASTROZOL) [Concomitant]
     Route: 065
  8. EZETROL (EZETIMIBUM) [Concomitant]
     Route: 065
  9. ROSUCARD (ROSUVASTATIN) [Concomitant]
     Route: 065

REACTIONS (1)
  - Ischaemic stroke [Recovered/Resolved]
